FAERS Safety Report 5423633-2 (Version None)
Quarter: 2007Q3

REPORT INFORMATION
  Report Type: 
  Country: None (occurrence: None)
  Receive Date: 20070727
  Receipt Date: 20070613
  Transmission Date: 20080115
  Serious: Yes (Other)
  Sender: FDA-Public Use
  Company Number: USEN-745NFW

PATIENT
  Sex: Male

DRUGS (7)
  1. DURAPREP [Suspect]
     Indication: PREOPERATIVE CARE
     Dosage: 6 ML, TOPICAL
     Route: 061
  2. PLAVIX [Concomitant]
  3. ASPIRIN [Concomitant]
  4. PACEMAKER [Concomitant]
  5. LOBAN TAPE [Concomitant]
  6. GAUZE [Concomitant]
  7. TEGADERM [Concomitant]

REACTIONS (2)
  - BLISTER [None]
  - SKIN IRRITATION [None]
